FAERS Safety Report 11148006 (Version 2)
Quarter: 2015Q3

REPORT INFORMATION
  Report Type: Report from Study
  Country: US (occurrence: US)
  Receive Date: 20150529
  Receipt Date: 20150714
  Transmission Date: 20151125
  Serious: No
  Sender: FDA-Public Use
  Company Number: US-BIOGENIDEC-2015BI072235

PATIENT
  Sex: Female
  Weight: 47 kg

DRUGS (5)
  1. CLONAZEPAM. [Concomitant]
     Active Substance: CLONAZEPAM
     Route: 048
  2. IBUPROFEN. [Concomitant]
     Active Substance: IBUPROFEN
  3. TYSABRI [Suspect]
     Active Substance: NATALIZUMAB
     Indication: MULTIPLE SCLEROSIS
     Route: 042
     Dates: start: 20130920
  4. ACETAMINOPHEN. [Concomitant]
     Active Substance: ACETAMINOPHEN
     Route: 048
  5. CHOLECALCIFEROL [Concomitant]
     Active Substance: CHOLECALCIFEROL
     Route: 048

REACTIONS (2)
  - Meningioma [Recovered/Resolved]
  - Central nervous system lesion [Unknown]

NARRATIVE: CASE EVENT DATE: 2015
